FAERS Safety Report 6384940-2 (Version None)
Quarter: 2009Q4

REPORT INFORMATION
  Report Type: 
  Country: None (occurrence: None)
  Receive Date: 20091002
  Receipt Date: 20090820
  Transmission Date: 20100525
  Serious: No
  Sender: FDA-Public Use
  Company Number: A0803294A

PATIENT
  Age: 53 Year
  Sex: Female

DRUGS (5)
  1. REQUIP XL [Suspect]
     Indication: PARKINSON'S DISEASE
     Dosage: 4MG TWICE PER DAY
     Route: 048
     Dates: start: 20090520
  2. TASMAR [Concomitant]
  3. CLONAZEPAM [Concomitant]
  4. TYLENOL [Concomitant]
  5. EFFEXOR [Concomitant]

REACTIONS (1)
  - INCONTINENCE [None]
